FAERS Safety Report 8576646-6 (Version None)
Quarter: 2012Q3

REPORT INFORMATION
  Report Type: 
  Country: None (occurrence: None)
  Receive Date: 20120807
  Receipt Date: 20120112
  Transmission Date: 20120928
  Serious: Yes (Other)
  Sender: FDA-Public Use
  Company Number: US-ROCHE-1098184

PATIENT
  Sex: Female

DRUGS (7)
  1. XOLAIR [Suspect]
     Indication: ASTHMA
     Dates: start: 20040401, end: 20050301
  2. PREDNISONE [Concomitant]
  3. ALBUTEROL [Concomitant]
  4. FLUTICASONE PROPIONATE [Concomitant]
     Dosage: 500/50
  5. ALLEGRA [Concomitant]
  6. NASACORT [Concomitant]
  7. ALLERGY SHOT [Concomitant]

REACTIONS (2)
  - WHEEZING [None]
  - DYSPNOEA [None]
